FAERS Safety Report 5308747-X (Version None)
Quarter: 2007Q2

REPORT INFORMATION
  Report Type: 
  Country: None (occurrence: None)
  Receive Date: 20070426
  Receipt Date: 20070425
  Transmission Date: 20071010
  Serious: Yes (Other)
  Sender: FDA-Public Use
  Company Number: 200711896EU

PATIENT
  Age: 58 Year
  Sex: Female

DRUGS (4)
  1. NICODERM [Suspect]
     Dosage: 21MG PER DAY
     Route: 062
     Dates: start: 20070301, end: 20070407
  2. TYLENOL W/ CODEINE [Suspect]
     Dates: start: 20070401, end: 20070407
  3. TYLENOL [Concomitant]
     Indication: ARTHRITIS
  4. GLUCONORM [Concomitant]
     Indication: DIABETES MELLITUS
     Route: 048
     Dates: start: 19970101

REACTIONS (12)
  - APPLICATION SITE IRRITATION [None]
  - CHEST PAIN [None]
  - DIZZINESS [None]
  - DYSSTASIA [None]
  - HALLUCINATION [None]
  - INTENTIONAL DRUG MISUSE [None]
  - IRRITABILITY [None]
  - NERVOUSNESS [None]
  - NICOTINE DEPENDENCE [None]
  - PRESYNCOPE [None]
  - RIB FRACTURE [None]
  - TREMOR [None]
